FAERS Safety Report 18351208 (Version 2)
Quarter: 2020Q4

REPORT INFORMATION
  Report Type: Report from Study
  Country: None (occurrence: US)
  Receive Date: 20201007
  Receipt Date: 20201218
  Transmission Date: 20210114
  Serious: Yes (Other)
  Sender: FDA-Public Use
  Company Number: US-ABBVIE-20K-163-3449074-00

PATIENT
  Sex: Male

DRUGS (3)
  1. HUMIRA [Suspect]
     Active Substance: ADALIMUMAB
     Indication: CROHN^S DISEASE
     Route: 058
     Dates: start: 202007
  2. HUMIRA [Suspect]
     Active Substance: ADALIMUMAB
     Indication: CROHN^S DISEASE
     Dosage: DAY 1(2 PENS)
     Route: 058
     Dates: start: 20200610, end: 20200610
  3. HUMIRA [Suspect]
     Active Substance: ADALIMUMAB
     Dosage: DAY 15(1 PENS)
     Route: 058
     Dates: start: 20200624, end: 20200624

REACTIONS (18)
  - Nausea [Unknown]
  - Fistula [Recovering/Resolving]
  - Constipation [Recovered/Resolved]
  - Abdominal pain upper [Recovering/Resolving]
  - Rectal haemorrhage [Unknown]
  - Pyrexia [Unknown]
  - Vomiting [Unknown]
  - Weight decreased [Unknown]
  - Abnormal faeces [Not Recovered/Not Resolved]
  - Decreased appetite [Recovering/Resolving]
  - Anxiety [Unknown]
  - Crohn^s disease [Unknown]
  - Diarrhoea [Not Recovered/Not Resolved]
  - Fear [Unknown]
  - Adverse food reaction [Unknown]
  - Faeces soft [Unknown]
  - Arthralgia [Not Recovered/Not Resolved]
  - Visual impairment [Not Recovered/Not Resolved]

NARRATIVE: CASE EVENT DATE: 2020
